FAERS Safety Report 8908291 (Version 1)
Quarter: 2012Q4

REPORT INFORMATION
  Report Type: 
  Country: US (occurrence: US)
  Receive Date: 20121114
  Receipt Date: 20121114
  Transmission Date: 20130627
  Serious: Yes (Hospitalization, Other)
  Sender: FDA-Public Use
  Company Number: CHPA2012US020491

PATIENT
  Age: 81 Year
  Sex: Female

DRUGS (18)
  1. MAALOX [Suspect]
     Indication: DYSPEPSIA
     Dosage: 1 tablespoon as needed
     Route: 048
  2. FOLIC ACID [Concomitant]
     Indication: VITAMIN SUPPLEMENTATION
     Dosage: 1000 mg once a day
  3. ABTEI BIOTIN [Concomitant]
     Indication: VITAMIN SUPPLEMENTATION
     Dosage: 100 mg once a day
  4. VITAMIN B12 [Concomitant]
     Indication: VITAMIN SUPPLEMENTATION
  5. LIPITOR [Concomitant]
     Indication: BLOOD CHOLESTEROL INCREASED
  6. PREMARIN [Concomitant]
     Indication: HOT FLUSH
     Dosage: 0.3 mg every other day
  7. CENTRUM [Concomitant]
     Indication: VITAMIN SUPPLEMENTATION
     Dosage: One a day
  8. VITAMIN A D [Concomitant]
     Indication: VITAMIN SUPPLEMENTATION
     Dosage: 50000 IU/kg, once weekly
  9. TYLENOL [Concomitant]
     Indication: ARTHRITIS
  10. U VITAMIN C [Concomitant]
     Indication: VITAMIN SUPPLEMENTATION
  11. CALCIUM + VITAMIN D                /01483701/ [Concomitant]
     Indication: VITAMIN SUPPLEMENTATION
     Dosage: 600 mg
  12. COQ10 [Concomitant]
     Indication: VITAMIN SUPPLEMENTATION
     Dosage: 100 mg once a day
  13. LUTEIN [Concomitant]
     Indication: VITAMIN SUPPLEMENTATION
     Dosage: 20 mg once a day
  14. PLAVIX [Concomitant]
     Indication: ANTICOAGULANT THERAPY
     Dosage: 75 mg in the morning
  15. RANITIDINE [Concomitant]
     Indication: GASTRIC DISORDER
     Dosage: At night
  16. AMLODIPINE BESYLATE [Concomitant]
     Indication: HYPERTENSION
     Dosage: At night
  17. SYNTHROID [Concomitant]
     Indication: THYROID DISORDER
     Dosage: UNK
     Dates: start: 2005
  18. SINGULAIR [Concomitant]
     Indication: GASTRIC DISORDER

REACTIONS (6)
  - Myocardial infarction [Recovered/Resolved]
  - Back pain [Unknown]
  - Dyspepsia [Not Recovered/Not Resolved]
  - Flatulence [Unknown]
  - Pain in jaw [Unknown]
  - Wrong technique in drug usage process [Unknown]
